FAERS Safety Report 11100864 (Version 1)
Quarter: 2015Q2

REPORT INFORMATION
  Report Type: Spontaneous
  Country: US (occurrence: US)
  Receive Date: 20150508
  Receipt Date: 20150508
  Transmission Date: 20150821
  Serious: Yes (Hospitalization)
  Sender: FDA-Public Use
  Company Number: US-PFIZER INC-2015156999

PATIENT
  Age: 65 Year
  Sex: Female
  Weight: 69.39 kg

DRUGS (1)
  1. NIFEDIPINE. [Suspect]
     Active Substance: NIFEDIPINE
     Dosage: 30 MG, 1X/DAY
     Route: 048

REACTIONS (6)
  - Abdominal discomfort [Unknown]
  - Blood pressure inadequately controlled [Unknown]
  - Malaise [Unknown]
  - Arteriosclerosis [Unknown]
  - Arterial occlusive disease [Unknown]
  - Cardiac disorder [Unknown]
